FAERS Safety Report 21835756 (Version 1)
Quarter: 2023Q1

REPORT INFORMATION
  Report Type: Spontaneous
  Country: US (occurrence: None)
  Receive Date: 20230109
  Receipt Date: 20230109
  Transmission Date: 20230418
  Serious: No
  Sender: FDA-Public Use
  Company Number: 2022A415764

PATIENT
  Weight: 79.4 kg

DRUGS (1)
  1. FARXIGA [Suspect]
     Active Substance: DAPAGLIFLOZIN PROPANEDIOL
     Indication: Renal impairment
     Route: 048

REACTIONS (5)
  - Proteinuria [Unknown]
  - Flank pain [Not Recovered/Not Resolved]
  - Condition aggravated [Unknown]
  - Glomerular filtration rate abnormal [Unknown]
  - Off label use [Unknown]
